FAERS Safety Report 17260271 (Version 8)
Quarter: 2021Q2

REPORT INFORMATION
  Report Type: Other
  Country: CA (occurrence: CA)
  Receive Date: 20200112
  Receipt Date: 20210420
  Transmission Date: 20210716
  Serious: Yes (Life-Threatening, Other)
  Sender: FDA-Public Use
  Company Number: CA-APOTEX-2020AP005032

PATIENT
  Age: 44 Year
  Sex: Female

DRUGS (37)
  1. MINOCYCLINE [Suspect]
     Active Substance: MINOCYCLINE HYDROCHLORIDE
     Indication: HIDRADENITIS
     Dosage: UNK
     Route: 048
  2. MINOCYCLINE [Suspect]
     Active Substance: MINOCYCLINE HYDROCHLORIDE
     Indication: PRODUCT USED FOR UNKNOWN INDICATION
  3. CLINDAMYCIN. [Suspect]
     Active Substance: CLINDAMYCIN
     Indication: HIDRADENITIS
     Dosage: UNK
     Route: 061
  4. TRIAMCINOLONE [Suspect]
     Active Substance: TRIAMCINOLONE
     Indication: HIDRADENITIS
     Dosage: UNK
     Route: 026
  5. ERTAPENEM. [Suspect]
     Active Substance: ERTAPENEM SODIUM
     Indication: HIDRADENITIS
     Dosage: UNK
     Route: 042
  6. ACZONE [Suspect]
     Active Substance: DAPSONE
     Indication: HIDRADENITIS
     Dosage: UNK
     Route: 061
  7. CLINDA T [Suspect]
     Active Substance: CLINDAMYCIN PHOSPHATE
     Indication: HIDRADENITIS
     Dosage: UNK
     Route: 061
  8. CLINDA T [Suspect]
     Active Substance: CLINDAMYCIN PHOSPHATE
     Dosage: UNK
     Route: 065
  9. ROFACT                             /00146901/ [Suspect]
     Active Substance: RIFAMPIN
     Indication: HIDRADENITIS
     Dosage: UNK
     Route: 065
  10. ARESTIN [Suspect]
     Active Substance: MINOCYCLINE HYDROCHLORIDE
     Indication: HIDRADENITIS
     Dosage: UNK
     Route: 065
  11. DOXYCYCLINE. [Suspect]
     Active Substance: DOXYCYCLINE
     Indication: HIDRADENITIS
     Dosage: UNK
     Route: 061
  12. AMOXICILLIN. [Suspect]
     Active Substance: AMOXICILLIN
     Indication: HIDRADENITIS
     Dosage: UNK
     Route: 065
  13. METRONIDAZOLE. [Suspect]
     Active Substance: METRONIDAZOLE
     Indication: PRODUCT USED FOR UNKNOWN INDICATION
  14. ACZONE [Suspect]
     Active Substance: DAPSONE
     Indication: HIDRADENITIS
     Dosage: UNK
     Route: 061
  15. DAPSONE. [Suspect]
     Active Substance: DAPSONE
     Dosage: UNK
     Route: 048
  16. RIFAMPICIN [Suspect]
     Active Substance: RIFAMPIN
     Indication: HIDRADENITIS
     Dosage: 150 MILLIGRAM
     Route: 065
  17. PREDNISONE. [Suspect]
     Active Substance: PREDNISONE
     Indication: HIDRADENITIS
     Dosage: UNK
     Route: 065
  18. ACZONE [Suspect]
     Active Substance: DAPSONE
     Dosage: UNK
     Route: 065
  19. NORITATE [Suspect]
     Active Substance: METRONIDAZOLE
     Indication: HIDRADENITIS
     Dosage: UNK
     Route: 065
  20. AMOXICILLIN AND CLAVULANATE POTASSIUM [Suspect]
     Active Substance: AMOXICILLIN\CLAVULANATE POTASSIUM
     Indication: HIDRADENITIS
     Dosage: UNK
     Route: 065
  21. METRONIDAZOLE. [Suspect]
     Active Substance: METRONIDAZOLE
     Indication: HIDRADENITIS
     Dosage: UNK
     Route: 065
  22. DAPSONE. [Suspect]
     Active Substance: DAPSONE
     Indication: HIDRADENITIS
     Dosage: UNK
     Route: 065
  23. NORITATE [Suspect]
     Active Substance: METRONIDAZOLE
     Dosage: UNK
     Route: 061
  24. TETRACYCLINE [Suspect]
     Active Substance: TETRACYCLINE
     Indication: HIDRADENITIS
     Dosage: UNK
     Route: 065
  25. MOXIFLOXACIN. [Suspect]
     Active Substance: MOXIFLOXACIN
     Indication: HIDRADENITIS
     Dosage: UNK
     Route: 065
  26. ISOTRETINOIN. [Suspect]
     Active Substance: ISOTRETINOIN
     Indication: HIDRADENITIS
     Dosage: UNK
     Route: 065
  27. ARISTOCORT [Suspect]
     Active Substance: TRIAMCINOLONE DIACETATE
     Indication: HIDRADENITIS
     Dosage: UNK
     Route: 026
  28. RIFAMPIN. [Suspect]
     Active Substance: RIFAMPIN
     Indication: HIDRADENITIS
     Dosage: 150 MILLIGRAM
     Route: 065
  29. DOXYCYCLINE. [Suspect]
     Active Substance: DOXYCYCLINE
     Indication: HIDRADENITIS
     Dosage: UNK
     Route: 065
  30. AVELOX [Suspect]
     Active Substance: MOXIFLOXACIN HYDROCHLORIDE
     Indication: HIDRADENITIS
     Dosage: UNK
     Route: 065
  31. CLINDAMYCIN. [Suspect]
     Active Substance: CLINDAMYCIN
     Indication: HIDRADENITIS
     Dosage: UNK
     Route: 065
  32. CLINDAMYCIN. [Suspect]
     Active Substance: CLINDAMYCIN
     Indication: PRODUCT USED FOR UNKNOWN INDICATION
  33. INVANZ [Suspect]
     Active Substance: ERTAPENEM SODIUM
     Indication: HIDRADENITIS
     Dosage: UNK
     Route: 042
  34. DAPSONE. [Suspect]
     Active Substance: DAPSONE
     Dosage: UNK
     Route: 061
  35. ZINC. [Suspect]
     Active Substance: ZINC
     Indication: HIDRADENITIS
     Dosage: UNK
     Route: 065
  36. METRONIDAZOLE. [Suspect]
     Active Substance: METRONIDAZOLE
     Indication: HIDRADENITIS
     Dosage: UNK
     Route: 061
  37. METRONIDAZOLE. [Suspect]
     Active Substance: METRONIDAZOLE
     Indication: PRODUCT USED FOR UNKNOWN INDICATION

REACTIONS (12)
  - Condition aggravated [Unknown]
  - Drug intolerance [Unknown]
  - Scar [Unknown]
  - Hidradenitis [Unknown]
  - Pain [Unknown]
  - Drug ineffective [Unknown]
  - Wound secretion [Unknown]
  - Skin lesion [Unknown]
  - Mobility decreased [Unknown]
  - Skin odour abnormal [Unknown]
  - Suicidal ideation [Unknown]
  - Treatment failure [Unknown]
